FAERS Safety Report 9847384 (Version 2)
Quarter: 2014Q1

REPORT INFORMATION
  Report Type: Report from Study
  Country: CA (occurrence: CA)
  Receive Date: 20140127
  Receipt Date: 20140127
  Transmission Date: 20141002
  Serious: Yes (Disabling, Other)
  Sender: FDA-Public Use
  Company Number: CA-ABBVIE-13P-028-1175327-00

PATIENT
  Sex: Female
  Weight: 112 kg

DRUGS (8)
  1. HUMIRA [Suspect]
     Indication: CROHN^S DISEASE
     Route: 058
     Dates: start: 20120328, end: 201311
  2. SALOFALK [Concomitant]
     Indication: CROHN^S DISEASE
     Dates: start: 2002, end: 2009
  3. PENTASA [Concomitant]
     Indication: CROHN^S DISEASE
     Dosage: 1-1.5 GRAM
     Route: 048
     Dates: start: 2009, end: 201010
  4. PREDNISONE [Concomitant]
     Indication: CROHN^S DISEASE
     Dosage: 3 TREATMENTS
     Route: 048
     Dates: start: 2002
  5. PREDNISONE [Concomitant]
     Dosage: 3 TREATMENTS
     Route: 048
     Dates: start: 2009
  6. PREDNISONE [Concomitant]
     Dosage: 3 TREATMENTS
     Route: 048
     Dates: start: 2010
  7. PREDNISONE [Concomitant]
     Dosage: 3 TREATMENTS
     Route: 048
     Dates: start: 2010, end: 2010
  8. AZATHIOPRINE [Concomitant]
     Indication: CROHN^S DISEASE
     Route: 048
     Dates: start: 201101

REACTIONS (3)
  - Ileal stenosis [Recovered/Resolved]
  - Crohn^s disease [Recovered/Resolved]
  - Enteritis [Unknown]
